FAERS Safety Report 17457071 (Version 4)
Quarter: 2020Q2

REPORT INFORMATION
  Report Type: Spontaneous
  Country: US (occurrence: US)
  Receive Date: 20200225
  Receipt Date: 20200520
  Transmission Date: 20200713
  Serious: No
  Sender: FDA-Public Use
  Company Number: US-SA-2020SA048856

PATIENT
  Age: 55 Year
  Sex: Female

DRUGS (1)
  1. KEVZARA [Suspect]
     Active Substance: SARILUMAB
     Indication: RHEUMATOID ARTHRITIS
     Dosage: 200 MG, QOW
     Route: 058
     Dates: start: 20191120

REACTIONS (6)
  - Stomatitis [Unknown]
  - Speech disorder [Unknown]
  - Feeding disorder [Unknown]
  - Fatigue [Unknown]
  - Skin ulcer [Unknown]
  - Acne [Unknown]

NARRATIVE: CASE EVENT DATE: 202002
